FAERS Safety Report 6801694-3 (Version None)
Quarter: 2010Q2

REPORT INFORMATION
  Report Type: 
  Country: None (occurrence: None)
  Receive Date: 20100624
  Receipt Date: 20100614
  Transmission Date: 20101027
  Serious: Yes (Hospitalization)
  Sender: FDA-Public Use
  Company Number: B0661543A

PATIENT
  Age: 18 Year
  Sex: Male

DRUGS (2)
  1. PAROXETINE HYDROCHLORIDE [Suspect]
     Indication: MAJOR DEPRESSION
  2. METHYLPHENIDATE HCL [Suspect]

REACTIONS (11)
  - AGGRESSION [None]
  - DELUSION OF GRANDEUR [None]
  - ELEVATED MOOD [None]
  - HYPERTENSION [None]
  - LIBIDO INCREASED [None]
  - MANIA [None]
  - MUSCLE RIGIDITY [None]
  - MYDRIASIS [None]
  - NUCHAL RIGIDITY [None]
  - PSYCHOTIC DISORDER [None]
  - SEROTONIN SYNDROME [None]
